FAERS Safety Report 5301570-1 (Version None)
Quarter: 2007Q2

REPORT INFORMATION
  Report Type: 
  Country: None (occurrence: None)
  Receive Date: 20070412
  Receipt Date: 20070404
  Transmission Date: 20071010
  Serious: Yes (Other)
  Sender: FDA-Public Use
  Company Number: GXKR2007GB03190

PATIENT
  Age: 53 Year
  Sex: Male

DRUGS (1)
  1. TRIMETHOPRIM [Suspect]
     Dosage: 200 MG, BID, ORAL
     Route: 048
     Dates: start: 20070317, end: 20070324

REACTIONS (3)
  - FACE OEDEMA [None]
  - PRURITUS [None]
  - RASH [None]
